FAERS Safety Report 10501021 (Version 1)
Quarter: 2014Q4

REPORT INFORMATION
  Report Type: Spontaneous
  Country: US (occurrence: None)
  Receive Date: 20141006
  Receipt Date: 20141006
  Transmission Date: 20150528
  Serious: Yes (Other)
  Sender: FDA-Public Use
  Company Number: None

PATIENT
  Age: 51 Year
  Sex: Male
  Weight: 100.5 kg

DRUGS (1)
  1. CEPHALEXIN. [Suspect]
     Active Substance: CEPHALEXIN
     Indication: PERIORBITAL CELLULITIS
     Route: 048
     Dates: start: 20140602, end: 20140606

REACTIONS (1)
  - Seizure [None]

NARRATIVE: CASE EVENT DATE: 20140606
